FAERS Safety Report 5425010-7 (Version None)
Quarter: 2007Q3

REPORT INFORMATION
  Report Type: 
  Country: None (occurrence: None)
  Receive Date: 20070824
  Receipt Date: 20070814
  Transmission Date: 20080115
  Serious: Yes (Other)
  Sender: FDA-Public Use
  Company Number: JP-ABBOTT-07P-087-0376250-00

PATIENT
  Age: 71 Year
  Sex: Male
  Weight: 56 kg

DRUGS (19)
  1. SEVOFLURANE [Suspect]
     Indication: GENERAL ANAESTHESIA
     Dosage: UP TO 5%
  2. SEVOFLURANE [Suspect]
     Dosage: MAINTAINED AT 0.8% TO 1.7%
  3. SEVOFLURANE [Suspect]
     Dosage: MAINTAINED AT 1.5% TO 2.9%
  4. SEVOFLURANE [Suspect]
     Dosage: 1-5%
  5. SEVOFLURANE [Suspect]
     Dosage: MAINTAINED 1-3%
  6. SEVOFLURANE [Suspect]
     Dosage: 2-3 %
  7. SEVOFLURANE [Suspect]
     Dosage: BOLUS DOSE
  8. DIAZEPAM [Concomitant]
     Indication: PREMEDICATION
     Route: 048
  9. THIAMYLAL [Concomitant]
     Indication: GENERAL ANAESTHESIA
  10. FENTANYL [Concomitant]
     Indication: GENERAL ANAESTHESIA
  11. FENTANYL [Concomitant]
  12. FENTANYL [Concomitant]
     Route: 042
  13. FENTANYL [Concomitant]
     Route: 042
  14. FENTANYL [Concomitant]
     Dosage: TOTAL VOLUME
     Route: 042
  15. VECURONIUM BROMIDE [Concomitant]
     Indication: MUSCLE RELAXANT THERAPY
  16. VECURONIUM BROMIDE [Concomitant]
     Indication: GENERAL ANAESTHESIA
  17. OINTMENT [Concomitant]
     Indication: DRUG USE FOR UNKNOWN INDICATION
     Route: 047
  18. LIDOCAINE [Concomitant]
     Indication: LOCAL ANAESTHESIA
     Route: 050
  19. EPINEPHRINE [Concomitant]
     Indication: LOCAL ANAESTHESIA
     Route: 050

REACTIONS (1)
  - UNWANTED AWARENESS DURING ANAESTHESIA [None]
